FAERS Safety Report 20895095 (Version 1)
Quarter: 2022Q2

REPORT INFORMATION
  Report Type: Report from Study
  Country: CN (occurrence: CN)
  Receive Date: 20220531
  Receipt Date: 20220531
  Transmission Date: 20220721
  Serious: Yes (Other)
  Sender: FDA-Public Use
  Company Number: CN-TAKEDA-2022TUS036049

PATIENT
  Age: 24 Year
  Sex: Male
  Weight: 50 kg

DRUGS (5)
  1. VEDOLIZUMAB [Suspect]
     Active Substance: VEDOLIZUMAB
     Indication: Crohn^s disease
     Dosage: 300 MILLIGRAM
     Route: 042
     Dates: start: 20220112
  2. VANCOMYCIN HYDROCHLORIDE [Concomitant]
     Active Substance: VANCOMYCIN HYDROCHLORIDE
     Dosage: 0.125 GRAM, QD
     Route: 048
     Dates: start: 20220116, end: 20220116
  3. METRONIDAZOLE [Concomitant]
     Active Substance: METRONIDAZOLE
     Dosage: 0.4 GRAM, TID
     Route: 048
     Dates: start: 20220127, end: 20220220
  4. RIFAXIMIN [Concomitant]
     Active Substance: RIFAXIMIN
     Dosage: 0.2 GRAM, BID
     Route: 048
     Dates: start: 20220322, end: 20220417
  5. METHYLPREDNISOLONE [Concomitant]
     Active Substance: METHYLPREDNISOLONE
     Indication: Inflammatory bowel disease
     Dosage: 32 MILLIGRAM, QD
     Route: 048
     Dates: start: 20220322

REACTIONS (2)
  - Clostridium difficile colitis [Not Recovered/Not Resolved]
  - Acne [Not Recovered/Not Resolved]

NARRATIVE: CASE EVENT DATE: 20220127
